FAERS Safety Report 11061599 (Version 1)
Quarter: 2015Q2

REPORT INFORMATION
  Report Type: Spontaneous
  Country: US (occurrence: US)
  Receive Date: 20150424
  Receipt Date: 20150424
  Transmission Date: 20150821
  Serious: No
  Sender: FDA-Public Use
  Company Number: US-PFIZER INC-2015138574

PATIENT
  Age: 33 Year
  Sex: Female
  Weight: 61 kg

DRUGS (9)
  1. METHYLPREDNISOLONE. [Suspect]
     Active Substance: METHYLPREDNISOLONE
     Indication: VULVOVAGINAL BURNING SENSATION
  2. DIFLUCAN [Suspect]
     Active Substance: FLUCONAZOLE
     Indication: VULVOVAGINAL PRURITUS
     Dosage: UNK
     Dates: start: 201503, end: 201504
  3. DIFLUCAN [Suspect]
     Active Substance: FLUCONAZOLE
     Indication: VULVOVAGINAL PAIN
  4. MONISTAT [Suspect]
     Active Substance: MICONAZOLE NITRATE
     Indication: VULVOVAGINAL PAIN
  5. DIFLUCAN [Suspect]
     Active Substance: FLUCONAZOLE
     Indication: VULVOVAGINAL BURNING SENSATION
  6. METHYLPREDNISOLONE. [Suspect]
     Active Substance: METHYLPREDNISOLONE
     Indication: VULVOVAGINAL PAIN
  7. MONISTAT [Suspect]
     Active Substance: MICONAZOLE NITRATE
     Indication: VULVOVAGINAL PRURITUS
     Dosage: UNK
     Dates: start: 201503, end: 201503
  8. MONISTAT [Suspect]
     Active Substance: MICONAZOLE NITRATE
     Indication: VULVOVAGINAL BURNING SENSATION
  9. METHYLPREDNISOLONE. [Suspect]
     Active Substance: METHYLPREDNISOLONE
     Indication: VULVOVAGINAL PRURITUS
     Dosage: UNK
     Dates: start: 201504, end: 201504

REACTIONS (1)
  - Drug ineffective [Unknown]
